FAERS Safety Report 8181617 (Version 4)
Quarter: 2013Q3

REPORT INFORMATION
  Report Type: Report from Study
  Country: AU (occurrence: AU)
  Receive Date: 20111014
  Receipt Date: 20130924
  Transmission Date: 20140515
  Serious: Yes (Other)
  Sender: FDA-Public Use
  Company Number: AU-GLAXOSMITHKLINE-B0755176A

PATIENT
  Age: 78 Year
  Sex: Male

DRUGS (8)
  1. MELPHALAN [Suspect]
     Indication: PLASMA CELL MYELOMA
     Route: 065
     Dates: start: 20070623, end: 20080204
  2. LENALIDOMIDE [Suspect]
     Indication: PLASMA CELL MYELOMA
     Dosage: 15MG PER DAY
     Route: 048
     Dates: start: 20081011, end: 20111229
  3. PLACEBO [Suspect]
     Indication: PLASMA CELL MYELOMA
     Route: 048
  4. PREDNISONE [Suspect]
     Indication: PLASMA CELL MYELOMA
     Route: 065
  5. PAMIDRONATE DISODIUM [Concomitant]
     Indication: PLASMA CELL MYELOMA
     Route: 065
  6. LACTULOSE [Concomitant]
     Indication: CONSTIPATION
     Route: 065
  7. ASPIRIN [Concomitant]
     Indication: THROMBOSIS PROPHYLAXIS
     Route: 065
  8. BETAMETHASONE VALERATE [Concomitant]
     Indication: URTICARIA
     Route: 065

REACTIONS (5)
  - Squamous cell carcinoma of skin [Recovered/Resolved]
  - Squamous cell carcinoma of skin [Recovered/Resolved]
  - Actinic keratosis [Recovered/Resolved]
  - Squamous cell carcinoma of skin [Recovered/Resolved]
  - Bowen^s disease [Recovered/Resolved]
